FAERS Safety Report 8406600-6 (Version None)
Quarter: 2012Q2

REPORT INFORMATION
  Report Type: 
  Country: None (occurrence: None)
  Receive Date: 20120529
  Receipt Date: 19990812
  Transmission Date: 20120825
  Serious: Yes (Life-Threatening, Hospitalization)
  Sender: FDA-Public Use
  Company Number: 02100-JPN-99-0123

PATIENT
  Age: 55 Year
  Sex: Female
  Weight: 55.6 kg

DRUGS (6)
  1. TICLOPIDINE HYDROCHLORIDE [Suspect]
     Indication: ACUTE MYOCARDIAL INFARCTION
     Dosage: ORAL
     Route: 048
     Dates: start: 19990701, end: 19990730
  2. OMEPRAZOLE [Suspect]
     Indication: PRODUCT USED FOR UNKNOWN INDICATION
     Dates: end: 19990806
  3. MAALOX (MAGNESIUM HYDROXIDE, ALUMINIUM HYDROXIDE GEL) [Concomitant]
  4. PLETAL [Suspect]
     Indication: ACUTE MYOCARDIAL INFARCTION
     Dosage: 50 MG, BID, ORAL
     Route: 048
     Dates: start: 19990701, end: 19990811
  5. ISOSORBIDE MONONITRATE [Suspect]
     Indication: ACUTE MYOCARDIAL INFARCTION
     Dates: start: 19990701, end: 19990811
  6. PARIET (RABEPRAZOLE) TABLET [Concomitant]

REACTIONS (10)
  - SEPSIS [None]
  - PSEUDOMONAL BACTERAEMIA [None]
  - LYMPHOCYTE MORPHOLOGY ABNORMAL [None]
  - THROMBOCYTOPENIA [None]
  - ANAEMIA [None]
  - VIRAL INFECTION [None]
  - ERYTHROPENIA [None]
  - AGRANULOCYTOSIS [None]
  - DISSEMINATED INTRAVASCULAR COAGULATION [None]
  - BONE MARROW FAILURE [None]
